FAERS Safety Report 7494564-1 (Version None)
Quarter: 2011Q2

REPORT INFORMATION
  Report Type: 
  Country: None (occurrence: None)
  Receive Date: 20110520
  Receipt Date: 20110516
  Transmission Date: 20111010
  Serious: Yes (Life-Threatening)
  Sender: FDA-Public Use
  Company Number: PHHY2011EG42194

PATIENT
  Age: 17 Year
  Sex: Male

DRUGS (1)
  1. CATAFLAM [Suspect]
     Indication: TOOTHACHE
     Dosage: 2 DF (2 TABLETS ONLY)
     Route: 048

REACTIONS (2)
  - PERITONITIS [None]
  - GASTRIC ULCER PERFORATION [None]
